FAERS Safety Report 6504209-2 (Version None)
Quarter: 2009Q4

REPORT INFORMATION
  Report Type: 
  Country: None (occurrence: None)
  Receive Date: 20091217
  Receipt Date: 20091208
  Transmission Date: 20100525
  Serious: Yes (Hospitalization, Disabling, Other)
  Sender: FDA-Public Use
  Company Number: NZ-WYE-G05023609

PATIENT
  Sex: Female

DRUGS (2)
  1. EFFEXOR XR [Suspect]
     Indication: POST-TRAUMATIC STRESS DISORDER
     Dosage: STARTED 75MG DAILY, THEN 150MG DAILY THEN 75MG X 3 EACH NIGHT SINCE 2005
     Route: 048
  2. EFFEXOR XR [Suspect]
     Indication: PANIC ATTACK
     Dosage: ^WEANING OFF THE EFEXOR XR^
     Route: 048

REACTIONS (26)
  - BALANCE DISORDER [None]
  - BLOOD PRESSURE INCREASED [None]
  - CONDITION AGGRAVATED [None]
  - CONDUCTION DISORDER [None]
  - DIARRHOEA [None]
  - DRUG EFFECT DECREASED [None]
  - DRUG WITHDRAWAL SYNDROME [None]
  - DYSTONIA [None]
  - EMOTIONAL DISTRESS [None]
  - FOOT DEFORMITY [None]
  - HAEMORRHAGE [None]
  - HEAD TITUBATION [None]
  - HEADACHE [None]
  - HEART RATE INCREASED [None]
  - INSOMNIA [None]
  - LOSS OF EMPLOYMENT [None]
  - MANIA [None]
  - MENTAL DISORDER [None]
  - PAIN [None]
  - PANIC ATTACK [None]
  - PARAESTHESIA [None]
  - RESTLESS LEGS SYNDROME [None]
  - SLEEP DISORDER [None]
  - SUICIDAL IDEATION [None]
  - TONGUE PARALYSIS [None]
  - TREMOR [None]
